FAERS Safety Report 6377810-7 (Version None)
Quarter: 2009Q3

REPORT INFORMATION
  Report Type: 
  Country: None (occurrence: None)
  Receive Date: 20090925
  Receipt Date: 20090917
  Transmission Date: 20100115
  Serious: Yes (Hospitalization)
  Sender: FDA-Public Use
  Company Number: NO-ABBOTT-09P-122-0597795-00

PATIENT
  Age: 8 Year
  Sex: Female
  Weight: 44 kg

DRUGS (2)
  1. PROCREN DEPOT [Suspect]
     Indication: DRUG USE FOR UNKNOWN INDICATION
     Route: 058
     Dates: start: 20030122
  2. GENOTROPIN [Suspect]
     Indication: GROWTH HORMONE DEFICIENCY
     Dates: start: 20030318, end: 20030401

REACTIONS (1)
  - TYPE 2 DIABETES MELLITUS [None]
